FAERS Safety Report 19722839 (Version 3)
Quarter: 2021Q3

REPORT INFORMATION
  Report Type: Spontaneous
  Country: US (occurrence: US)
  Receive Date: 20210820
  Receipt Date: 20210827
  Transmission Date: 20211014
  Serious: No
  Sender: FDA-Public Use
  Company Number: US-009507513-2107USA007735

PATIENT
  Sex: Female

DRUGS (6)
  1. PROVENTIL [Suspect]
     Active Substance: ALBUTEROL
     Dosage: UNK, PRN
     Dates: start: 202107
  2. PROVENTIL [Suspect]
     Active Substance: ALBUTEROL
     Dosage: UNK, PRN
     Dates: start: 202107
  3. PROVENTIL [Suspect]
     Active Substance: ALBUTEROL
     Dosage: UNK UNK, PRN
     Dates: start: 202107
  4. PROVENTIL [Suspect]
     Active Substance: ALBUTEROL
     Dosage: AS NEEDED
     Dates: start: 202107
  5. PROVENTIL [Suspect]
     Active Substance: ALBUTEROL
     Dosage: AS NEEDED
     Dates: start: 202107
  6. PROVENTIL [Suspect]
     Active Substance: ALBUTEROL
     Dosage: AS NEEDED
     Dates: start: 202107

REACTIONS (6)
  - Poor quality device used [Unknown]
  - Device defective [Unknown]
  - Product delivery mechanism issue [Unknown]
  - Poor quality device used [Unknown]
  - Product delivery mechanism issue [Unknown]
  - Asthma [Unknown]

NARRATIVE: CASE EVENT DATE: 2021
